FAERS Safety Report 7222683-3 (Version None)
Quarter: 2011Q1

REPORT INFORMATION
  Report Type: 
  Country: None (occurrence: None)
  Receive Date: 20110106
  Receipt Date: 20110106
  Transmission Date: 20110831
  Serious: Yes (Life-Threatening, Hospitalization)
  Sender: FDA-Public Use
  Company Number: None

PATIENT
  Age: 55 Year
  Sex: Female
  Weight: 59.1 kg

DRUGS (1)
  1. AMBIEN [Suspect]
     Indication: INSOMNIA
     Dosage: 5 MG Q DAY PRN ORAL
     Route: 048

REACTIONS (5)
  - LOSS OF CONSCIOUSNESS [None]
  - IMPAIRED WORK ABILITY [None]
  - GRAND MAL CONVULSION [None]
  - CONFUSIONAL STATE [None]
  - FEAR OF DISEASE [None]
